FAERS Safety Report 8103024-6 (Version None)
Quarter: 2012Q1

REPORT INFORMATION
  Report Type: 
  Country: None (occurrence: None)
  Receive Date: 20120201
  Receipt Date: 20120201
  Transmission Date: 20120608
  Serious: No
  Sender: FDA-Public Use
  Company Number: None

PATIENT
  Age: 78 Year
  Sex: Female

DRUGS (2)
  1. VERAPAMIL TAB [Concomitant]
     Indication: ATRIAL FIBRILLATION
     Dosage: 80MG
     Route: 048
  2. SIMVASTATIN [Suspect]
     Indication: BLOOD CHOLESTEROL INCREASED
     Dosage: 40MG
     Route: 048
     Dates: start: 20080129, end: 20120121

REACTIONS (2)
  - MYALGIA [None]
  - MUSCULAR WEAKNESS [None]
